FAERS Safety Report 12163016 (Version 1)
Quarter: 2016Q1

REPORT INFORMATION
  Report Type: Spontaneous
  Country: US (occurrence: US)
  Receive Date: 20160309
  Receipt Date: 20160309
  Transmission Date: 20160526
  Serious: Yes (Hospitalization)
  Sender: FDA-Public Use
  Company Number: US-JNJFOC-20160308335

PATIENT
  Age: 60 Year
  Sex: Male

DRUGS (5)
  1. CANAGLIFLOZIN [Suspect]
     Active Substance: CANAGLIFLOZIN
     Indication: TYPE 2 DIABETES MELLITUS
     Route: 065
  2. INSULIN [Concomitant]
     Active Substance: INSULIN NOS
  3. TUMS [Concomitant]
     Active Substance: CALCIUM CARBONATE
  4. METFORMIN [Concomitant]
     Active Substance: METFORMIN HYDROCHLORIDE
  5. GLIMEPIRIDE. [Concomitant]
     Active Substance: GLIMEPIRIDE

REACTIONS (4)
  - Hypercalcaemia [Recovering/Resolving]
  - Diabetic ketoacidosis [Recovered/Resolved]
  - Renal impairment [Recovering/Resolving]
  - Hypernatraemia [Recovered/Resolved]
